FAERS Safety Report 22082115 (Version 1)
Quarter: 2023Q1

REPORT INFORMATION
  Report Type: Spontaneous
  Country: ES (occurrence: ES)
  Receive Date: 20230310
  Receipt Date: 20230310
  Transmission Date: 20230417
  Serious: Yes (Hospitalization)
  Sender: FDA-Public Use
  Company Number: None

PATIENT
  Age: 91 Year
  Sex: Male

DRUGS (2)
  1. OCTREOTIDE [Suspect]
     Active Substance: OCTREOTIDE
     Indication: Product used for unknown indication
     Dosage: OCTREOTIDA (2495A)
     Dates: start: 20230118, end: 20230118
  2. SUCCINYLCHOLINE CHLORIDE [Suspect]
     Active Substance: SUCCINYLCHOLINE CHLORIDE
     Indication: Product used for unknown indication
     Dosage: SUXAMETONIO (3048A)
     Dates: start: 20230118, end: 20230118

REACTIONS (3)
  - Aphasia [Unknown]
  - Syncope [Unknown]
  - Wrong drug [Recovered/Resolved]

NARRATIVE: CASE EVENT DATE: 20230118
